FAERS Safety Report 6704868-5 (Version None)
Quarter: 2010Q2

REPORT INFORMATION
  Report Type: 
  Country: None (occurrence: None)
  Receive Date: 20100430
  Receipt Date: 20091229
  Transmission Date: 20101027
  Serious: No
  Sender: FDA-Public Use
  Company Number: US-ASTRAZENECA-2009SE33918

PATIENT
  Age: 23292 Day
  Sex: Female

DRUGS (6)
  1. NEXIUM [Suspect]
     Indication: GASTROOESOPHAGEAL REFLUX DISEASE
     Route: 048
     Dates: start: 20091226, end: 20091228
  2. DIOVAN [Concomitant]
  3. PAXIL [Concomitant]
  4. EXCEDRIN (MIGRAINE) [Concomitant]
  5. VITAMIN D [Concomitant]
  6. AMBIEN [Concomitant]

REACTIONS (4)
  - DRUG DOSE OMISSION [None]
  - DRY MOUTH [None]
  - DRY THROAT [None]
  - DYSGEUSIA [None]
